FAERS Safety Report 6180280-5 (Version None)
Quarter: 2009Q2

REPORT INFORMATION
  Report Type: 
  Country: None (occurrence: None)
  Receive Date: 20090501
  Receipt Date: 20090422
  Transmission Date: 20091009
  Serious: Yes (Hospitalization)
  Sender: FDA-Public Use
  Company Number: 2009-01398

PATIENT
  Age: 48 Year
  Sex: Female
  Weight: 73 kg

DRUGS (4)
  1. VELCADE [Suspect]
     Indication: MULTIPLE MYELOMA
     Dosage: 2.3 MG, INTRAVENOUS
     Route: 042
     Dates: start: 20080617, end: 20090406
  2. PAMIDRONATE DISODIUM [Concomitant]
  3. ACENOCOUMAROL (ACENOCOUMAROL) [Concomitant]
  4. THYRAX (LEVOTHYROXINE) [Concomitant]

REACTIONS (7)
  - DYSPNOEA [None]
  - EYE PAIN [None]
  - FATIGUE [None]
  - MYALGIA [None]
  - OROPHARYNGEAL PAIN [None]
  - RESPIRATORY TRACT INFECTION [None]
  - UPPER RESPIRATORY TRACT INFLAMMATION [None]
